FAERS Safety Report 13400411 (Version 2)
Quarter: 2017Q2

REPORT INFORMATION
  Report Type: Report from Study
  Country: US (occurrence: US)
  Receive Date: 20170404
  Receipt Date: 20170425
  Transmission Date: 20170830
  Serious: No
  Sender: FDA-Public Use
  Company Number: US-009507513-1703USA009424

PATIENT
  Age: 54 Year
  Sex: Female

DRUGS (2)
  1. PEMBROLIZUMAB. [Suspect]
     Active Substance: PEMBROLIZUMAB
     Indication: MALIGNANT MELANOMA
     Dosage: UNK, Q3W
     Route: 042
     Dates: start: 20170317
  2. HYDROCODONE [Suspect]
     Active Substance: HYDROCODONE
     Indication: FIBROMYALGIA
     Dosage: 5-325MG, UNISPECIFIED TIMES A DAY
     Dates: start: 2016

REACTIONS (7)
  - Hypersomnia [Recovering/Resolving]
  - Body fat disorder [Unknown]
  - Sleep disorder [Recovering/Resolving]
  - Tachyphrenia [Recovering/Resolving]
  - Pruritus [Recovering/Resolving]
  - Hepatic enzyme increased [Unknown]
  - Poor quality sleep [Recovering/Resolving]

NARRATIVE: CASE EVENT DATE: 20170318
